FAERS Safety Report 18754150 (Version 1)
Quarter: 2021Q1

REPORT INFORMATION
  Report Type: Report from Study
  Country: MX (occurrence: MX)
  Receive Date: 20210119
  Receipt Date: 20210119
  Transmission Date: 20210419
  Serious: Yes (Other)
  Sender: FDA-Public Use
  Company Number: MX-MAIA PHARMACEUTICALS, INC.-MAI202101-000003

PATIENT

DRUGS (2)
  1. LEVOTHYROXINE SODIUM. [Suspect]
     Active Substance: LEVOTHYROXINE SODIUM
     Indication: CHRONIC KIDNEY DISEASE
  2. LEVOTHYROXINE SODIUM. [Suspect]
     Active Substance: LEVOTHYROXINE SODIUM
     Indication: PROTEINURIA
     Dosage: 25 MCG
     Route: 048

REACTIONS (2)
  - Escherichia urinary tract infection [Unknown]
  - Drug effective for unapproved indication [Unknown]
